FAERS Safety Report 6924368-7 (Version None)
Quarter: 2010Q3

REPORT INFORMATION
  Report Type: 
  Country: None (occurrence: None)
  Receive Date: 20100811
  Receipt Date: 20100811
  Transmission Date: 20110219
  Serious: Yes (Death)
  Sender: FDA-Public Use
  Company Number: None

PATIENT
  Age: 13 Year
  Sex: Male
  Weight: 56.6996 kg

DRUGS (2)
  1. REMICADE [Suspect]
     Indication: CROHN'S DISEASE
     Dosage: 1 DOSE 1 TIME I.V.   1 DOSE
     Route: 042
     Dates: start: 20050101
  2. MERCAPTOPURINE [Suspect]
     Indication: CROHN'S DISEASE
     Dosage: 2 TABLETS 50MG DAILY PILLS
     Dates: start: 20050101, end: 20100101

REACTIONS (1)
  - ACUTE LYMPHOCYTIC LEUKAEMIA [None]
